FAERS Safety Report 16581595 (Version 1)
Quarter: 2019Q3

REPORT INFORMATION
  Report Type: Spontaneous
  Country: JO (occurrence: JO)
  Receive Date: 20190716
  Receipt Date: 20190716
  Transmission Date: 20191004
  Serious: Yes (Other)
  Sender: FDA-Public Use
  Company Number: JO-ALLERGAN-1928961US

PATIENT
  Sex: Female

DRUGS (1)
  1. ZYMAXID [Suspect]
     Active Substance: GATIFLOXACIN
     Indication: CONJUNCTIVITIS
     Dosage: 5 MG, Q2HR
     Route: 061
     Dates: start: 20190701, end: 20190707

REACTIONS (2)
  - Scleromalacia [Unknown]
  - Ulcerative keratitis [Unknown]

NARRATIVE: CASE EVENT DATE: 20190701
